FAERS Safety Report 10547665 (Version 1)
Quarter: 2014Q4

REPORT INFORMATION
  Report Type: Spontaneous
  Country: US (occurrence: None)
  Receive Date: 20141015
  Receipt Date: 20141015
  Transmission Date: 20150529
  Serious: No
  Sender: FDA-Public Use
  Company Number: 2014US003603

PATIENT
  Age: 68 Year
  Sex: Female

DRUGS (3)
  1. ICLUSIG [Suspect]
     Active Substance: PONATINIB
     Indication: BREAST CANCER
     Route: 048
  2. TYKERB (LAPTINIB DITOSYLATE MONOHYDRATE) [Concomitant]
  3. AROMASIN [Concomitant]
     Active Substance: EXEMESTANE

REACTIONS (3)
  - Pyrexia [None]
  - Off label use [None]
  - Dry skin [None]
